FAERS Safety Report 8867241 (Version 1)
Quarter: 2012Q4

REPORT INFORMATION
  Report Type: 
  Country: US (occurrence: US)
  Receive Date: 20121025
  Receipt Date: 20121025
  Transmission Date: 20130627
  Serious: No
  Sender: FDA-Public Use
  Company Number: US-AMGEN-USASP2012015550

PATIENT
  Age: 56 Year
  Sex: Male
  Weight: 68.03 kg

DRUGS (15)
  1. ENBREL [Suspect]
     Indication: PRODUCT USED FOR UNKNOWN INDICATION
     Dosage: 50 mg, qwk
     Route: 058
  2. VITAMIN B [Concomitant]
     Dosage: UNK
  3. ACCUTANE [Concomitant]
     Dosage: 10 mg, UNK
  4. CRESTOR [Concomitant]
     Dosage: 10 mg, UNK
  5. ZETIA [Concomitant]
     Dosage: 10 mg, UNK
  6. RAMIPRIL [Concomitant]
     Dosage: 10 mg, UNK
  7. OMEPRAZOLE [Concomitant]
     Dosage: 10 mg, UNK
  8. MULTIVITAMIN                       /01229101/ [Concomitant]
     Dosage: UNK
  9. CHROMIUM PICOLINAT [Concomitant]
     Dosage: 200 mug, UNK
  10. VITAMIN C                          /00008001/ [Concomitant]
     Dosage: 500 mg, UNK
  11. VITAMIN E                          /00110501/ [Concomitant]
     Dosage: UNK
  12. LECITHIN [Concomitant]
     Dosage: 1140 mg, UNK
  13. TRAMADOL HCL [Concomitant]
     Dosage: 300 mg, UNK
  14. FOLIC ACID [Concomitant]
     Dosage: 5 mg, UNK
  15. TURMERIC [Concomitant]
     Dosage: UNK

REACTIONS (2)
  - Injection site pain [Unknown]
  - Injection site warmth [Unknown]
